FAERS Safety Report 18421179 (Version 13)
Quarter: 2022Q2

REPORT INFORMATION
  Report Type: Report from Study
  Country: GB (occurrence: GB)
  Receive Date: 20201023
  Receipt Date: 20220526
  Transmission Date: 20220721
  Serious: Yes (Hospitalization, Other)
  Sender: FDA-Public Use
  Company Number: NVSC2020GB284471

PATIENT
  Age: 61 Year
  Sex: Female

DRUGS (2)
  1. KISQALI [Suspect]
     Active Substance: RIBOCICLIB
     Indication: Breast cancer
     Dosage: UNK
     Route: 065
     Dates: start: 20201019
  2. COCODAMOL [Concomitant]
     Active Substance: ACETAMINOPHEN\CODEINE PHOSPHATE
     Indication: Product used for unknown indication
     Dosage: UNK
     Route: 065

REACTIONS (24)
  - Lower respiratory tract infection [Unknown]
  - Angina pectoris [Not Recovered/Not Resolved]
  - Diabetes mellitus [Unknown]
  - Sinus tachycardia [Unknown]
  - Arrhythmia [Unknown]
  - Heart rate increased [Unknown]
  - Blood pressure increased [Unknown]
  - Chest discomfort [Unknown]
  - Electrocardiogram abnormal [Unknown]
  - Arthralgia [Unknown]
  - Joint swelling [Unknown]
  - Fall [Unknown]
  - Contusion [Unknown]
  - Lower limb fracture [Unknown]
  - Liver function test increased [Unknown]
  - COVID-19 [Recovered/Resolved]
  - Palpitations [Unknown]
  - Nephrolithiasis [Unknown]
  - Muscle twitching [Unknown]
  - Urinary tract infection [Unknown]
  - Cough [Unknown]
  - Fatigue [Unknown]
  - Dyspnoea [Unknown]
  - Peripheral swelling [Unknown]

NARRATIVE: CASE EVENT DATE: 20201001
